FAERS Safety Report 9127034 (Version 1)
Quarter: 2013Q1

REPORT INFORMATION
  Report Type: Spontaneous
  Country: US (occurrence: US)
  Receive Date: 20130122
  Receipt Date: 20130122
  Transmission Date: 20140127
  Serious: Yes (Life-Threatening, Hospitalization, Other)
  Sender: FDA-Public Use
  Company Number: US-ELI_LILLY_AND_COMPANY-US201201007846

PATIENT
  Sex: Female

DRUGS (13)
  1. BYETTA [Suspect]
     Dosage: 10 UG, BID
  2. NOVOLOG [Concomitant]
     Dosage: 10 U, TID
  3. ASPIRIN [Concomitant]
     Dosage: 325 MG, QD
  4. PLAVIX [Concomitant]
     Dosage: 75 MG, QD
  5. BENAZEPRIL [Concomitant]
     Dosage: 20 MG, BID
  6. COREG [Concomitant]
     Dosage: 37.5 DF, BID
  7. VYTORIN [Concomitant]
     Dosage: UNK, OTHER
  8. LANOXIN [Concomitant]
     Dosage: 0.125 MG, QD
  9. DILANTIN [Concomitant]
     Dosage: 300 MG, EACH EVENING
  10. SPIRONOLACTONE [Concomitant]
     Dosage: 25 MG, QD
  11. TORSEMIDE [Concomitant]
     Dosage: 20 MG, BID
  12. PRECOSE [Concomitant]
     Dosage: 100 MG, TID
  13. INDAPAMIDE [Concomitant]
     Dosage: 2.5 MG, QD

REACTIONS (3)
  - Acute respiratory distress syndrome [Unknown]
  - Renal failure chronic [Unknown]
  - Renal failure acute [Unknown]
